FAERS Safety Report 11987062 (Version 1)
Quarter: 2016Q1

REPORT INFORMATION
  Report Type: Report from Study
  Country: US (occurrence: US)
  Receive Date: 20160202
  Receipt Date: 20160202
  Transmission Date: 20160526
  Serious: No
  Sender: FDA-Public Use
  Company Number: US-ABBVIE-15K-163-1334696-00

PATIENT
  Age: 37 Year
  Sex: Female
  Weight: 72.64 kg

DRUGS (3)
  1. OSPHENA [Concomitant]
     Active Substance: OSPEMIFENE
     Indication: VULVOVAGINAL DRYNESS
  2. LISINOPRIL. [Concomitant]
     Active Substance: LISINOPRIL
     Indication: HYPERTENSION
  3. HUMIRA [Suspect]
     Active Substance: ADALIMUMAB
     Indication: PSORIASIS
     Route: 058
     Dates: start: 199612, end: 20150117

REACTIONS (4)
  - Injection site mass [Not Recovered/Not Resolved]
  - Influenza [Recovered/Resolved]
  - Sinusitis [Recovering/Resolving]
  - Injection site pruritus [Not Recovered/Not Resolved]

NARRATIVE: CASE EVENT DATE: 199612
